FAERS Safety Report 21995019 (Version 2)
Quarter: 2023Q1

REPORT INFORMATION
  Report Type: Spontaneous
  Country: CA (occurrence: CA)
  Receive Date: 20230215
  Receipt Date: 20230222
  Transmission Date: 20230418
  Serious: Yes (Other)
  Sender: FDA-Public Use
  Company Number: CA-PFIZER INC-202200777958

PATIENT
  Age: 22 Year
  Sex: Female

DRUGS (11)
  1. ABRILADA [Suspect]
     Active Substance: ADALIMUMAB-AFZB
     Indication: Crohn^s disease
     Dosage: 40 MG EVERY 2 WEEKS (FORMULATION: PREFILLED PEN)
     Route: 058
     Dates: start: 20220511, end: 20220511
  2. ABRILADA [Suspect]
     Active Substance: ADALIMUMAB-AFZB
     Dosage: 40 MG EVERY 2 WEEKS (FORMULATION: PREFILLED PEN)
     Route: 058
     Dates: start: 20220511, end: 20230119
  3. ABRILADA [Suspect]
     Active Substance: ADALIMUMAB-AFZB
     Dosage: 40 MG EVERY 2 WEEKS (UNKNOWN FORMULATION)
     Route: 058
     Dates: start: 20220526, end: 20220526
  4. ABRILADA [Suspect]
     Active Substance: ADALIMUMAB-AFZB
     Dosage: 40 MG EVERY 2 WEEKS (UNKNOWN FORMULATION)
     Route: 058
     Dates: start: 20221027, end: 20221027
  5. ABRILADA [Suspect]
     Active Substance: ADALIMUMAB-AFZB
     Dosage: 40 MG EVERY 2 WEEKS (UNKNOWN FORMULATION)
     Route: 058
     Dates: start: 20221110, end: 20221110
  6. ABRILADA [Suspect]
     Active Substance: ADALIMUMAB-AFZB
     Dosage: 40 MG EVERY 2 WEEKS (UNKNOWN FORMULATION)
     Route: 058
     Dates: start: 20221128, end: 20221128
  7. ABRILADA [Suspect]
     Active Substance: ADALIMUMAB-AFZB
     Dosage: 40 MG EVERY 2 WEEKS (FORMULATION: PREFILLED PEN)
     Route: 058
     Dates: start: 20221208
  8. ABRILADA [Suspect]
     Active Substance: ADALIMUMAB-AFZB
     Dosage: 40 MG EVERY 2 WEEKS (FORMULATION: PREFILLED PEN)
     Route: 058
     Dates: start: 20221222
  9. ABRILADA [Suspect]
     Active Substance: ADALIMUMAB-AFZB
     Dosage: 40 MG EVERY 2 WEEKS (FORMULATION: PREFILLED PEN)
     Route: 058
     Dates: start: 20230105
  10. ABRILADA [Suspect]
     Active Substance: ADALIMUMAB-AFZB
     Dosage: 40 MG EVERY 2 WEEKS (FORMULATION: PREFILLED PEN)
     Route: 058
     Dates: start: 20230119
  11. ABRILADA [Suspect]
     Active Substance: ADALIMUMAB-AFZB
     Dosage: 40 MG EVERY 2 WEEKS (FORMULATION: PREFILLED PEN)
     Route: 058
     Dates: start: 20230215

REACTIONS (11)
  - Urinary tract infection [Recovered/Resolved]
  - Hidradenitis [Not Recovered/Not Resolved]
  - Incorrect dose administered [Unknown]
  - Inappropriate schedule of product administration [Unknown]
  - Acne [Unknown]
  - Rash [Not Recovered/Not Resolved]
  - Psoriasis [Not Recovered/Not Resolved]
  - Buttock injury [Recovering/Resolving]
  - Tenderness [Recovering/Resolving]
  - Erythema [Not Recovered/Not Resolved]
  - Furuncle [Not Recovered/Not Resolved]

NARRATIVE: CASE EVENT DATE: 20220101
